FAERS Safety Report 14225190 (Version 1)
Quarter: 2017Q4

REPORT INFORMATION
  Report Type: Spontaneous
  Country: US (occurrence: None)
  Receive Date: 20171122
  Receipt Date: 20171122
  Transmission Date: 20180321
  Serious: No
  Sender: FDA-Public Use
  Company Number: None

PATIENT
  Sex: Female
  Weight: 62.6 kg

DRUGS (1)
  1. FORTEO [Suspect]
     Active Substance: TERIPARATIDE
     Route: 058
     Dates: start: 201706

REACTIONS (9)
  - Injection site erythema [None]
  - Injection site rash [None]
  - Headache [None]
  - Injection site swelling [None]
  - Injection site pruritus [None]
  - Injection site bruising [None]
  - Injection site reaction [None]
  - Pruritus [None]
  - Injection site pain [None]
